FAERS Safety Report 17987549 (Version 1)
Quarter: 2020Q3

REPORT INFORMATION
  Report Type: Spontaneous
  Country: CA (occurrence: CA)
  Receive Date: 20200707
  Receipt Date: 20200707
  Transmission Date: 20201103
  Serious: Yes (Hospitalization, Other)
  Sender: FDA-Public Use
  Company Number: CA-SUN PHARMACEUTICAL INDUSTRIES LTD-2020R1-252026

PATIENT
  Age: 16 Year
  Sex: Male

DRUGS (5)
  1. SERTRALINE [Suspect]
     Active Substance: SERTRALINE HYDROCHLORIDE
     Indication: AUTISM SPECTRUM DISORDER
     Dosage: 50 MILLIGRAM, DAILY
     Route: 065
  2. LORAZEPAM. [Suspect]
     Active Substance: LORAZEPAM
     Indication: AUTISM SPECTRUM DISORDER
     Dosage: 2 MILLIGRAM MORNING, 3 MG AT NOON, 3 MG AT
     Route: 065
  3. CHLORPROMAZINE. [Suspect]
     Active Substance: CHLORPROMAZINE
     Indication: AUTISM SPECTRUM DISORDER
     Dosage: 100 MG IN THE MORNING, 200 MG AT NOON, AND 200 MG AT 15:00
     Route: 065
  4. FLUVOXAMINE [Suspect]
     Active Substance: FLUVOXAMINE
     Indication: AUTISM SPECTRUM DISORDER
     Dosage: 150 MILLIGRAM, DAILY
     Route: 065
  5. SERTRALINE [Suspect]
     Active Substance: SERTRALINE HYDROCHLORIDE
     Dosage: 150 MILLIGRAM, DAILY
     Route: 065

REACTIONS (3)
  - Aggression [Unknown]
  - Hyperprolactinaemia [Unknown]
  - Acanthosis nigricans [Unknown]
